FAERS Safety Report 6577117-9 (Version None)
Quarter: 2010Q1

REPORT INFORMATION
  Report Type: 
  Country: None (occurrence: None)
  Receive Date: 20100210
  Receipt Date: 20100128
  Transmission Date: 20100710
  Serious: Yes (Hospitalization)
  Sender: FDA-Public Use
  Company Number: US-ELI_LILLY_AND_COMPANY-US201002001237

PATIENT
  Sex: Female

DRUGS (4)
  1. FORTEO [Suspect]
     Indication: OSTEOPOROSIS
     Dosage: 20 UG, DAILY (1/D)
     Route: 065
     Dates: start: 20090101
  2. NEURONTIN [Concomitant]
     Dosage: 300 MG, EACH EVENING
     Route: 065
  3. AMBIEN [Concomitant]
     Dosage: UNK, UNKNOWN
     Route: 065
  4. TRAMADOL [Concomitant]
     Indication: ARTHRALGIA
     Dosage: UNK, AS NEEDED
     Route: 065

REACTIONS (9)
  - CHEST PAIN [None]
  - FACIAL PAIN [None]
  - INFLAMMATION [None]
  - MOBILITY DECREASED [None]
  - NASAL DISORDER [None]
  - ORAL DISCOMFORT [None]
  - RESORPTION BONE INCREASED [None]
  - TOOTH DISORDER [None]
  - TRIGEMINAL NERVE DISORDER [None]
